FAERS Safety Report 10733440 (Version 2)
Quarter: 2016Q1

REPORT INFORMATION
  Report Type: Spontaneous
  Country: ES (occurrence: ES)
  Receive Date: 20150123
  Receipt Date: 20160127
  Transmission Date: 20160525
  Serious: Yes (Hospitalization)
  Sender: FDA-Public Use
  Company Number: ES-CELGENE-ESP-2015012505

PATIENT
  Age: 79 Year
  Sex: Female

DRUGS (3)
  1. ERYTHROCYTES [Concomitant]
     Active Substance: HUMAN RED BLOOD CELL
     Indication: CYTOPENIA
     Route: 041
     Dates: start: 201112
  2. AZACITIDINE. [Suspect]
     Active Substance: AZACITIDINE
     Indication: ACUTE MYELOID LEUKAEMIA
     Route: 065
  3. PLATELETS [Concomitant]
     Active Substance: HUMAN PLATELET, ALLOGENIC
     Indication: CYTOPENIA
     Route: 041
     Dates: start: 201112

REACTIONS (2)
  - Septic shock [Unknown]
  - Liver disorder [Unknown]

NARRATIVE: CASE EVENT DATE: 201112
